FAERS Safety Report 4822533-6 (Version None)
Quarter: 2005Q4

REPORT INFORMATION
  Report Type: 
  Country: None (occurrence: None)
  Receive Date: 20051108
  Receipt Date: 20051027
  Transmission Date: 20060501
  Serious: Yes (Hospitalization)
  Sender: FDA-Public Use
  Company Number: US-JNJFOC-20050700588

PATIENT
  Sex: Female
  Weight: 76.2 kg

DRUGS (16)
  1. REMICADE [Suspect]
     Route: 042
  2. REMICADE [Suspect]
     Dosage: DOSE GIVEN AT RATE OF 100CC
     Route: 042
  3. ALLEGRA [Concomitant]
     Dosage: 1 TABLET QHS
     Route: 048
  4. CALCIUM GLUCONATE [Concomitant]
  5. COREG [Concomitant]
     Route: 048
  6. FOLIC ACID [Concomitant]
  7. METHOTREXATE [Concomitant]
  8. MOBIC [Concomitant]
  9. PREDNISONE [Concomitant]
  10. ULTRACET [Concomitant]
     Dosage: 37.5/325 1 PRN QID
  11. VITAMIN D [Concomitant]
  12. ALPRAZOLAM [Concomitant]
     Dosage: 0.5
  13. AVANDIA [Concomitant]
  14. BONIVA [Concomitant]
  15. CRESTOR [Concomitant]
     Dosage: 1 QHS
  16. PREVACID [Concomitant]

REACTIONS (8)
  - CELLULITIS [None]
  - DIARRHOEA [None]
  - DRUG ADMINISTRATION ERROR [None]
  - DYSPNOEA [None]
  - INFUSION RELATED REACTION [None]
  - MUSCLE SPASMS [None]
  - PAIN [None]
  - URTICARIA [None]
